FAERS Safety Report 24966968 (Version 1)
Quarter: 2025Q1

REPORT INFORMATION
  Report Type: Spontaneous
  Country: MX (occurrence: MX)
  Receive Date: 20250213
  Receipt Date: 20250213
  Transmission Date: 20250408
  Serious: Yes (Hospitalization)
  Sender: BIOMARIN
  Company Number: MX-BIOMARINAP-MX-2025-163317

PATIENT

DRUGS (1)
  1. VIMIZIM [Suspect]
     Active Substance: ELOSULFASE ALFA
     Indication: Mucopolysaccharidosis IV
     Dosage: UNK, QW
     Route: 042
     Dates: start: 20231121

REACTIONS (4)
  - Hip surgery [Recovering/Resolving]
  - Post procedural swelling [Recovering/Resolving]
  - Fatigue [Recovering/Resolving]
  - Anticipatory anxiety [Unknown]

NARRATIVE: CASE EVENT DATE: 20250120
